FAERS Safety Report 7773101-8 (Version None)
Quarter: 2011Q3

REPORT INFORMATION
  Report Type: 
  Country: None (occurrence: None)
  Receive Date: 20110922
  Receipt Date: 20100412
  Transmission Date: 20111222
  Serious: No
  Sender: FDA-Public Use
  Company Number: US-ASTRAZENECA-2009SE13327

PATIENT
  Age: 58 Year
  Sex: Female
  Weight: 80.7 kg

DRUGS (3)
  1. SYMBYAX [Concomitant]
  2. ZYPREXA [Concomitant]
  3. SEROQUEL [Suspect]
     Route: 048

REACTIONS (2)
  - TYPE 2 DIABETES MELLITUS [None]
  - CARDIAC DISORDER [None]
